FAERS Safety Report 7033454-5 (Version None)
Quarter: 2010Q4

REPORT INFORMATION
  Report Type: 
  Country: None (occurrence: None)
  Receive Date: 20101007
  Receipt Date: 20100927
  Transmission Date: 20110411
  Serious: Yes (Hospitalization)
  Sender: FDA-Public Use
  Company Number: DE-ABBOTT-10P-062-0667480-00

PATIENT
  Sex: Male
  Weight: 72.5 kg

DRUGS (25)
  1. ZEMPLAR [Suspect]
     Indication: HYPERPARATHYROIDISM SECONDARY
     Dosage: 10 MCG PER WEEK
     Route: 042
     Dates: start: 20090414, end: 20100301
  2. FERRLECIT [Concomitant]
     Indication: PRODUCT USED FOR UNKNOWN INDICATION
     Route: 042
     Dates: start: 20090107
  3. FOLGAMMA [Concomitant]
     Indication: PRODUCT USED FOR UNKNOWN INDICATION
     Route: 042
     Dates: start: 20021227
  4. EXFORGE [Concomitant]
     Indication: PRODUCT USED FOR UNKNOWN INDICATION
     Dosage: 10 MG/160 MG OD
     Route: 048
  5. MINIASAL [Concomitant]
     Indication: PRODUCT USED FOR UNKNOWN INDICATION
     Route: 048
  6. FUROSEMID [Concomitant]
     Indication: PRODUCT USED FOR UNKNOWN INDICATION
     Route: 048
  7. DECOSTRIOL [Concomitant]
     Indication: PRODUCT USED FOR UNKNOWN INDICATION
     Route: 048
  8. TAMSULOSIN [Concomitant]
     Indication: PRODUCT USED FOR UNKNOWN INDICATION
     Route: 048
  9. ANTIPHOSPHAT [Concomitant]
     Indication: PRODUCT USED FOR UNKNOWN INDICATION
     Route: 048
  10. FOSRENOL [Concomitant]
     Indication: PRODUCT USED FOR UNKNOWN INDICATION
     Route: 048
  11. FINASTERID [Concomitant]
     Indication: PRODUCT USED FOR UNKNOWN INDICATION
     Route: 048
  12. METO-SUCCINAT [Concomitant]
     Indication: PRODUCT USED FOR UNKNOWN INDICATION
     Route: 048
  13. ANTI-KALIUM [Concomitant]
     Indication: PRODUCT USED FOR UNKNOWN INDICATION
  14. ERYPO [Concomitant]
     Indication: PRODUCT USED FOR UNKNOWN INDICATION
  15. AEB 071 STUDY MEDICATION [Concomitant]
     Indication: PRODUCT USED FOR UNKNOWN INDICATION
  16. AMPHOTERICIN B [Concomitant]
     Indication: PRODUCT USED FOR UNKNOWN INDICATION
     Dosage: 1 PIPETTE
  17. COTRIM [Concomitant]
     Indication: PRODUCT USED FOR UNKNOWN INDICATION
  18. DALTEPARIN SODIUM [Concomitant]
     Indication: PRODUCT USED FOR UNKNOWN INDICATION
  19. EVEROLIMUS [Concomitant]
     Indication: PRODUCT USED FOR UNKNOWN INDICATION
  20. REDUCTO SPEZIAL (K-DIHYDROGE-P/NA-MONOHYDROGEN-P) [Concomitant]
     Indication: PRODUCT USED FOR UNKNOWN INDICATION
  21. URBASON [Concomitant]
     Indication: PRODUCT USED FOR UNKNOWN INDICATION
  22. BELOC ZOK MITE (METOPROLOLSUCCINAT) [Concomitant]
     Indication: PRODUCT USED FOR UNKNOWN INDICATION
  23. PANTOPRAZOLE SODIUM [Concomitant]
     Indication: PRODUCT USED FOR UNKNOWN INDICATION
  24. TAMULOSIN [Concomitant]
     Indication: PRODUCT USED FOR UNKNOWN INDICATION
  25. VALCYTE [Concomitant]
     Indication: PRODUCT USED FOR UNKNOWN INDICATION

REACTIONS (10)
  - HAEMORRHAGIC ANAEMIA [None]
  - HYPERTENSION [None]
  - MIGRAINE [None]
  - NEPHROGENIC ANAEMIA [None]
  - PERIRENAL HAEMATOMA [None]
  - PITYRIASIS [None]
  - PNEUMATIC COMPRESSION THERAPY [None]
  - RENAL TRANSPLANT [None]
  - SEBORRHOEIC DERMATITIS [None]
  - SEROMA [None]
